FAERS Safety Report 7394479 (Version 2)
Quarter: 2014Q1

REPORT INFORMATION
  Report Type: Spontaneous
  Country: US (occurrence: US)
  Receive Date: 20100520
  Receipt Date: 20140128
  Transmission Date: 20141002
  Serious: Yes (Hospitalization, Other)
  Sender: FDA-Public Use
  Company Number: US-JNJFOC-20100100435

PATIENT
  Sex: Female
  Weight: 45.81 kg

DRUGS (10)
  1. DURAGESIC [Suspect]
     Indication: NECK PAIN
     Route: 062
     Dates: start: 1999, end: 200911
  2. DURAGESIC [Suspect]
     Indication: NECK PAIN
     Route: 062
     Dates: start: 2000, end: 200909
  3. DURAGESIC [Suspect]
     Indication: BACK PAIN
     Route: 062
     Dates: start: 1999, end: 200911
  4. DURAGESIC [Suspect]
     Indication: BACK PAIN
     Route: 062
     Dates: start: 2000, end: 200909
  5. DURAGESIC [Suspect]
     Indication: NECK PAIN
     Route: 062
     Dates: start: 200911
  6. DURAGESIC [Suspect]
     Indication: NECK PAIN
     Route: 062
     Dates: start: 200909
  7. DURAGESIC [Suspect]
     Indication: BACK PAIN
     Route: 062
     Dates: start: 200909
  8. DURAGESIC [Suspect]
     Indication: BACK PAIN
     Route: 062
     Dates: start: 200911
  9. OXYCONTIN [Suspect]
     Indication: BREAKTHROUGH PAIN
     Route: 048
     Dates: start: 2003, end: 2003
  10. NEXIUM [Concomitant]
     Indication: GASTROOESOPHAGEAL REFLUX DISEASE
     Route: 048
     Dates: start: 1990

REACTIONS (9)
  - Convulsion [Recovered/Resolved]
  - Surgery [Recovered/Resolved]
  - Muscle spasms [Not Recovered/Not Resolved]
  - Insomnia [Not Recovered/Not Resolved]
  - Drug effect increased [Not Recovered/Not Resolved]
  - Therapeutic response decreased [Not Recovered/Not Resolved]
  - Hot flush [Not Recovered/Not Resolved]
  - Hyperhidrosis [Not Recovered/Not Resolved]
  - Product adhesion issue [Unknown]
